FAERS Safety Report 17763511 (Version 1)
Quarter: 2020Q2

REPORT INFORMATION
  Report Type: Spontaneous
  Country: US (occurrence: US)
  Receive Date: 20200509
  Receipt Date: 20200509
  Transmission Date: 20200714
  Serious: No
  Sender: FDA-Public Use
  Company Number: US-TEVA-2020-US-1233542

PATIENT

DRUGS (1)
  1. QVAR REDIHALER [Suspect]
     Active Substance: BECLOMETHASONE DIPROPIONATE
     Dosage: PUFF
     Route: 055

REACTIONS (4)
  - Throat irritation [Unknown]
  - Drug ineffective [Unknown]
  - Rebound effect [Unknown]
  - Asthma [Unknown]
